FAERS Safety Report 4264140-2 (Version None)
Quarter: 2004Q1

REPORT INFORMATION
  Report Type: 
  Country: None (occurrence: None)
  Receive Date: 20040106
  Receipt Date: 20040106
  Transmission Date: 20041129
  Serious: No
  Sender: FDA-Public Use
  Company Number: None

PATIENT
  Age: 65 Year
  Sex: Female
  Weight: 103.4201 kg

DRUGS (9)
  1. FLOLAN [Suspect]
     Indication: PULMONARY HYPERTENSION
     Dosage: 5-7 NG CONTNINUOUS
  2. OXYCODONE HCL [Suspect]
     Indication: PAIN
     Dosage: 1T PO Q4H PRN
     Route: 048
  3. WARFARIN SODIUM [Concomitant]
  4. GLYBURIDE [Concomitant]
  5. FOSEMIDE [Concomitant]
  6. ISOSORBIDE [Concomitant]
  7. COZAAR [Concomitant]
  8. K-TAB [Concomitant]
  9. METOPROLOL TARTRATE [Concomitant]

REACTIONS (3)
  - BLISTER [None]
  - PRURITUS [None]
  - URTICARIA [None]
